FAERS Safety Report 12088796 (Version 1)
Quarter: 2016Q1

REPORT INFORMATION
  Report Type: Spontaneous
  Country: US (occurrence: US)
  Receive Date: 20160218
  Receipt Date: 20160218
  Transmission Date: 20160526
  Serious: No
  Sender: FDA-Public Use
  Company Number: US-MYLANLABS-2015M1031022

PATIENT
  Sex: Female

DRUGS (1)
  1. DIGITEK [Suspect]
     Active Substance: DIGOXIN
     Dosage: 250 ?G, QD
     Route: 048
     Dates: start: 201507

REACTIONS (2)
  - Malaise [Not Recovered/Not Resolved]
  - Reaction to drug excipients [Not Recovered/Not Resolved]

NARRATIVE: CASE EVENT DATE: 201507
